FAERS Safety Report 20423512 (Version 1)
Quarter: 2022Q1

REPORT INFORMATION
  Report Type: Report from Study
  Country: CA (occurrence: None)
  Receive Date: 20220203
  Receipt Date: 20220203
  Transmission Date: 20220423
  Serious: Yes (Death, Other)
  Sender: FDA-Public Use
  Company Number: CA-Eisai Medical Research-EC-2022-107670

PATIENT
  Age: 86 Year
  Sex: Male

DRUGS (4)
  1. LENVIMA [Suspect]
     Active Substance: LENVATINIB
     Indication: Hepatocellular carcinoma
     Route: 048
     Dates: start: 20211229, end: 202201
  2. LENVIMA [Suspect]
     Active Substance: LENVATINIB
     Route: 048
     Dates: start: 202201, end: 20220129
  3. TAMSULOSIN [Concomitant]
     Active Substance: TAMSULOSIN
  4. APIXABAN [Concomitant]
     Active Substance: APIXABAN

REACTIONS (5)
  - Gastrointestinal perforation [Fatal]
  - Gastric cancer [Unknown]
  - Weight decreased [Unknown]
  - Blood pressure fluctuation [Unknown]
  - Blister [Recovered/Resolved]

NARRATIVE: CASE EVENT DATE: 20211229
